FAERS Safety Report 13124340 (Version 2)
Quarter: 2017Q1

REPORT INFORMATION
  Report Type: Spontaneous
  Country: US (occurrence: US)
  Receive Date: 20170118
  Receipt Date: 20170123
  Transmission Date: 20170428
  Serious: No
  Sender: FDA-Public Use
  Company Number: US-ASTRAZENECA-2017SE01411

PATIENT
  Age: 65 Year
  Sex: Female

DRUGS (7)
  1. NEXIUM [Suspect]
     Active Substance: ESOMEPRAZOLE MAGNESIUM
     Route: 048
  2. TYLENOL [Concomitant]
     Active Substance: ACETAMINOPHEN
     Indication: FIBROMYALGIA
  3. AMOXICILLIN. [Concomitant]
     Active Substance: AMOXICILLIN
  4. TYLENOL [Concomitant]
     Active Substance: ACETAMINOPHEN
     Indication: ARTHRITIS
  5. DUEXIS [Suspect]
     Active Substance: FAMOTIDINE\IBUPROFEN
     Indication: ARTHRITIS
     Dosage: 1.0DF AS REQUIRED
     Route: 065
  6. ALBUTEROL INHALER [Concomitant]
     Active Substance: ALBUTEROL
  7. DUEXIS [Suspect]
     Active Substance: FAMOTIDINE\IBUPROFEN
     Indication: FIBROMYALGIA
     Dosage: 1.0DF AS REQUIRED
     Route: 065

REACTIONS (3)
  - Off label use [Unknown]
  - Intentional product misuse [Unknown]
  - Impaired healing [Unknown]
